FAERS Safety Report 23514097 (Version 1)
Quarter: 2024Q1

REPORT INFORMATION
  Report Type: Spontaneous
  Country: US (occurrence: US)
  Receive Date: 20240212
  Receipt Date: 20240212
  Transmission Date: 20240409
  Serious: No
  Sender: FDA-Public Use
  Company Number: US-BRISTOL-MYERS SQUIBB COMPANY-2024-022275

PATIENT
  Sex: Male

DRUGS (2)
  1. ELIQUIS [Suspect]
     Active Substance: APIXABAN
     Indication: Product used for unknown indication
  2. TIKOSYN [Suspect]
     Active Substance: DOFETILIDE
     Indication: Product used for unknown indication

REACTIONS (2)
  - Nervousness [Unknown]
  - Circumstance or information capable of leading to medication error [Unknown]
